FAERS Safety Report 15842084 (Version 1)
Quarter: 2019Q1

REPORT INFORMATION
  Report Type: Spontaneous
  Country: US (occurrence: US)
  Receive Date: 20190117
  Receipt Date: 20190117
  Transmission Date: 20190417
  Serious: Yes (Other)
  Sender: FDA-Public Use
  Company Number: None

PATIENT
  Age: 62 Year
  Sex: Male
  Weight: 80.1 kg

DRUGS (1)
  1. BENRALIZUMAB. [Suspect]
     Active Substance: BENRALIZUMAB
     Indication: NASAL POLYPS
     Dosage: ?          OTHER FREQUENCY:Q8 WEEKS;?
     Route: 058

REACTIONS (2)
  - Wrist fracture [None]
  - Fall [None]

NARRATIVE: CASE EVENT DATE: 20190114
